FAERS Safety Report 5242594-2 (Version None)
Quarter: 2007Q1

REPORT INFORMATION
  Report Type: 
  Country: None (occurrence: None)
  Receive Date: 20061201
  Receipt Date: 20060714
  Transmission Date: 20070707
  Serious: No
  Sender: FDA-Public Use
  Company Number: 2006PV011606

PATIENT
  Age: 65 Year
  Sex: Male
  Weight: 81.6475 kg

DRUGS (5)
  1. BYETTA [Suspect]
     Indication: DIABETES MELLITUS NON-INSULIN-DEPENDENT
     Dosage: 10 MCG BID SC ; 5 MCG BID SC
     Route: 058
     Dates: start: 20051101
  2. GLUCOPHAGE [Concomitant]
  3. AVANDIA [Concomitant]
  4. LANTUS [Concomitant]
  5. VYTORIN [Concomitant]

REACTIONS (2)
  - BLOOD GLUCOSE INCREASED [None]
  - DRUG INEFFECTIVE [None]
